FAERS Safety Report 10234587 (Version 2)
Quarter: 2014Q2

REPORT INFORMATION
  Report Type: Spontaneous
  Country: US (occurrence: US)
  Receive Date: 20140613
  Receipt Date: 20140613
  Transmission Date: 20141212
  Serious: Yes (Other)
  Sender: FDA-Public Use
  Company Number: US-ROCHE-1360336

PATIENT
  Sex: Female
  Weight: 68.1 kg

DRUGS (16)
  1. XOLAIR [Suspect]
     Indication: ASTHMA
     Route: 058
  2. BUSPIRONE HCL [Concomitant]
     Route: 048
  3. SINGULAIR [Concomitant]
     Route: 048
  4. PROTONIX (UNITED STATES) [Concomitant]
     Route: 048
  5. AMLODIPINE BESYLATE [Concomitant]
     Route: 048
  6. PATADAY [Concomitant]
     Dosage: 1 GTT
     Route: 065
  7. DULERA [Concomitant]
     Dosage: 2 PUFFS, 200UG/5UG
     Route: 065
  8. GABAPENTIN [Concomitant]
     Route: 048
  9. GABAPENTIN [Concomitant]
     Route: 048
  10. TRIAMCINOLONE [Concomitant]
     Route: 061
  11. VENTOLIN HFA [Concomitant]
     Dosage: 2 PUFFS
     Route: 065
  12. FLOVENT HFA [Concomitant]
     Dosage: 1 PUFF
     Route: 065
  13. HYDROXYZINE PAMOATE [Concomitant]
     Route: 048
  14. LEXAPRO [Concomitant]
     Route: 048
  15. EPIPEN [Concomitant]
     Route: 065
  16. NEOMYCIN [Concomitant]
     Route: 048

REACTIONS (4)
  - Appendicitis perforated [Recovered/Resolved]
  - Fatigue [Recovered/Resolved]
  - Hypersomnia [Not Recovered/Not Resolved]
  - Urticaria [Recovering/Resolving]
